FAERS Safety Report 8842870 (Version 1)
Quarter: 2012Q4

REPORT INFORMATION
  Report Type: 
  Country: ES (occurrence: ES)
  Receive Date: 20121016
  Receipt Date: 20121016
  Transmission Date: 20130627
  Serious: Yes (Disabling, Other)
  Sender: FDA-Public Use
  Company Number: ES-ACTELION-A-CH2012-68583

PATIENT
  Age: 26 Year
  Sex: Female

DRUGS (5)
  1. TRACLEER [Suspect]
     Indication: PULMONARY ARTERIAL HYPERTENSION
     Dosage: 125 mg, bid
     Route: 048
     Dates: start: 2011
  2. TRACLEER [Suspect]
     Dosage: 62.5 mg, bid
     Route: 048
  3. TRACLEER [Suspect]
     Dosage: 125 mg, bid
     Route: 048
  4. TADALAFIL [Concomitant]
  5. ACENOCOUMAROL [Concomitant]

REACTIONS (2)
  - Diarrhoea [Recovered/Resolved]
  - Abdominal distension [Recovered/Resolved]
